FAERS Safety Report 5104151-8 (Version None)
Quarter: 2006Q3

REPORT INFORMATION
  Report Type: 
  Country: None (occurrence: None)
  Receive Date: 20060911
  Receipt Date: 20060829
  Transmission Date: 20061208
  Serious: Yes (Hospitalization)
  Sender: FDA-Public Use
  Company Number: 2006-02308

PATIENT
  Age: 53 Year
  Sex: Female
  Weight: 60 kg

DRUGS (2)
  1. VELCADE [Suspect]
     Indication: MYELODYSPLASTIC SYNDROME
     Dosage: 2.40 MG, INTRAVENOUS
     Route: 042
     Dates: start: 20060626, end: 20060817
  2. CYTARABINE [Suspect]
     Indication: MYELODYSPLASTIC SYNDROME
     Dosage: 32.00 MG, SUBCUTANEOUS
     Route: 058
     Dates: start: 20060626, end: 20060820

REACTIONS (2)
  - THROMBOCYTOPENIA [None]
  - VAGINAL HAEMORRHAGE [None]
